FAERS Safety Report 15663526 (Version 1)
Quarter: 2018Q4

REPORT INFORMATION
  Report Type: Report from Study
  Country: None (occurrence: BG)
  Receive Date: 20181128
  Receipt Date: 20181128
  Transmission Date: 20190205
  Serious: Yes (Death)
  Sender: FDA-Public Use
  Company Number: BG-ABBVIE-18S-022-2569877-00

PATIENT
  Sex: Male

DRUGS (1)
  1. DUODOPA [Suspect]
     Active Substance: CARBIDOPA\LEVODOPA
     Indication: PARKINSON^S DISEASE
     Dosage: MD- 8 ML, CR- 3.7 ML/H, EX- 1.5 ML
     Route: 050
     Dates: start: 20101124, end: 20181125

REACTIONS (2)
  - Respiratory failure [Fatal]
  - Renal failure [Fatal]
